FAERS Safety Report 9342068 (Version 2)
Quarter: 2013Q4

REPORT INFORMATION
  Report Type: Spontaneous
  Country: DE (occurrence: DE)
  Receive Date: 20130611
  Receipt Date: 20131126
  Transmission Date: 20140711
  Serious: Yes (Other)
  Sender: FDA-Public Use
  Company Number: PHHY2013DE057591

PATIENT
  Sex: Female

DRUGS (3)
  1. FEMARA [Suspect]
     Indication: BREAST CANCER
     Dosage: 2.5 MG, DAILY
     Dates: start: 200602
  2. FEMARA [Suspect]
     Dosage: 2.5 MG, EVERY OTHER DAY (APPROX. 6 MONTHS PRIOR TO REPORT)
  3. ZOMETA [Suspect]
     Dosage: SINCE 7 YEARS, AT THE BEGINNING 6 TIMES EVERY 4 WEEKS, THEN HALF YEARLY

REACTIONS (8)
  - Hormone level abnormal [Unknown]
  - Blood oestrogen abnormal [Unknown]
  - Blood testosterone increased [Unknown]
  - Blood oestrogen decreased [Unknown]
  - Progesterone increased [Unknown]
  - Dehydroepiandrosterone increased [Unknown]
  - Blood follicle stimulating hormone decreased [Unknown]
  - Blood luteinising hormone decreased [Unknown]
